FAERS Safety Report 25767121 (Version 1)
Quarter: 2025Q3

REPORT INFORMATION
  Report Type: Spontaneous
  Country: US (occurrence: US)
  Receive Date: 20250905
  Receipt Date: 20250905
  Transmission Date: 20251021
  Serious: No
  Sender: SANOFI AVENTIS
  Company Number: US-SA-2025SA265093

PATIENT
  Sex: Male

DRUGS (11)
  1. DUPIXENT [Suspect]
     Active Substance: DUPILUMAB
     Indication: Dermatitis atopic
     Dosage: 300 MG, QOW
     Route: 058
     Dates: start: 20230425
  2. ALBUTEROL SULFATE [Concomitant]
     Active Substance: ALBUTEROL SULFATE
  3. ATORVASTATIN [Concomitant]
     Active Substance: ATORVASTATIN
  4. AZELASTINE [Concomitant]
     Active Substance: AZELASTINE
  5. BACLOFEN [Concomitant]
     Active Substance: BACLOFEN
  6. BISACODYL [Concomitant]
     Active Substance: BISACODYL
  7. MINERALS\VITAMINS [Concomitant]
     Active Substance: MINERALS\VITAMINS
  8. CLOTRIMAZOLE [Concomitant]
     Active Substance: CLOTRIMAZOLE
  9. DICLOFENAC [Concomitant]
     Active Substance: DICLOFENAC
  10. FLUTICASONE [Concomitant]
     Active Substance: FLUTICASONE
  11. HYDROCODONE BITARTRATE AND ACETAMINOPHEN [Concomitant]
     Active Substance: ACETAMINOPHEN\HYDROCODONE BITARTRATE

REACTIONS (2)
  - Dermatitis atopic [Unknown]
  - Rebound effect [Unknown]
